FAERS Safety Report 14216736 (Version 2)
Quarter: 2017Q4

REPORT INFORMATION
  Report Type: Spontaneous
  Country: PL (occurrence: PL)
  Receive Date: 20171122
  Receipt Date: 20171222
  Transmission Date: 20180321
  Serious: Yes (Other)
  Sender: FDA-Public Use
  Company Number: PL-BAXTER-2017BAX038397

PATIENT
  Age: 26 Year
  Sex: Male

DRUGS (8)
  1. HOLOXAN [Suspect]
     Active Substance: IFOSFAMIDE
     Indication: BONE GIANT CELL TUMOUR
     Route: 065
  2. DENOSUMAB [Suspect]
     Active Substance: DENOSUMAB
     Indication: BONE GIANT CELL TUMOUR
     Route: 065
  3. DOXORUBICIN [Suspect]
     Active Substance: DOXORUBICIN
     Indication: BONE GIANT CELL TUMOUR
     Route: 065
  4. DOXORUBICIN [Suspect]
     Active Substance: DOXORUBICIN
     Indication: METASTASES TO LUNG
  5. CISPLATIN. [Suspect]
     Active Substance: CISPLATIN
     Indication: METASTASES TO LUNG
  6. DENOSUMAB [Suspect]
     Active Substance: DENOSUMAB
     Indication: METASTASES TO LUNG
  7. HOLOXAN [Suspect]
     Active Substance: IFOSFAMIDE
     Indication: METASTASES TO LUNG
  8. CISPLATIN. [Suspect]
     Active Substance: CISPLATIN
     Indication: BONE GIANT CELL TUMOUR
     Route: 065

REACTIONS (2)
  - Cerebral ischaemia [Unknown]
  - Malignant neoplasm progression [Unknown]
